FAERS Safety Report 25101261 (Version 3)
Quarter: 2025Q2

REPORT INFORMATION
  Report Type: Spontaneous
  Country: US (occurrence: US)
  Receive Date: 20250320
  Receipt Date: 20250516
  Transmission Date: 20250717
  Serious: Yes (Other)
  Sender: AMGEN
  Company Number: US-AMGEN-USASP2025053225

PATIENT
  Age: 44 Year

DRUGS (3)
  1. ENBREL [Suspect]
     Active Substance: ETANERCEPT
     Indication: Rheumatoid arthritis
     Route: 065
  2. ENBREL [Suspect]
     Active Substance: ETANERCEPT
     Route: 065
  3. ENBREL [Suspect]
     Active Substance: ETANERCEPT
     Route: 065

REACTIONS (5)
  - Rheumatoid arthritis [Unknown]
  - Injection site haemorrhage [Unknown]
  - Device difficult to use [Unknown]
  - Wrong technique in product usage process [Unknown]
  - Accidental exposure to product [Unknown]

NARRATIVE: CASE EVENT DATE: 20250314
